FAERS Safety Report 16757326 (Version 7)
Quarter: 2020Q1

REPORT INFORMATION
  Report Type: Report from Study
  Country: None (occurrence: US)
  Receive Date: 20190829
  Receipt Date: 20200313
  Transmission Date: 20200409
  Serious: Yes (Other)
  Sender: FDA-Public Use
  Company Number: US-ABBVIE-19K-163-2902319-00

PATIENT
  Age: 80 Year
  Sex: Male

DRUGS (11)
  1. BUDESONIDE NOVOLIZER [Concomitant]
     Indication: PRODUCT USED FOR UNKNOWN INDICATION
  2. AMLODIPINE [Concomitant]
     Active Substance: AMLODIPINE BESYLATE
     Indication: HYPERTENSION
  3. CANDESARTAN. [Concomitant]
     Active Substance: CANDESARTAN
     Indication: HYPERTENSION
  4. ALLOPURINOL. [Concomitant]
     Active Substance: ALLOPURINOL
     Indication: PRODUCT USED FOR UNKNOWN INDICATION
  5. PERFOROMIST [Concomitant]
     Active Substance: FORMOTEROL FUMARATE DIHYDRATE
     Indication: PRODUCT USED FOR UNKNOWN INDICATION
  6. VENCLEXTA [Suspect]
     Active Substance: VENETOCLAX
     Route: 048
  7. ROSUVASTATIN. [Concomitant]
     Active Substance: ROSUVASTATIN
     Indication: PRODUCT USED FOR UNKNOWN INDICATION
  8. RAPAFLO [Concomitant]
     Active Substance: SILODOSIN
     Indication: PRODUCT USED FOR UNKNOWN INDICATION
  9. VENCLEXTA [Suspect]
     Active Substance: VENETOCLAX
     Indication: CHRONIC LYMPHOCYTIC LEUKAEMIA
     Route: 048
     Dates: start: 20170828
  10. VENCLEXTA [Suspect]
     Active Substance: VENETOCLAX
     Dosage: TWO TABLETS EVERY MORNING WITH FOOD
     Route: 048
     Dates: end: 201911
  11. AMINO ACID [Concomitant]
     Active Substance: AMINO ACIDS, SOURCE UNSPECIFIED
     Indication: PRODUCT USED FOR UNKNOWN INDICATION

REACTIONS (20)
  - Poor quality sleep [Unknown]
  - Pancreatic carcinoma metastatic [Not Recovered/Not Resolved]
  - Arthritis [Not Recovered/Not Resolved]
  - Weight decreased [Unknown]
  - White blood cell count decreased [Unknown]
  - Decreased appetite [Recovering/Resolving]
  - Asthenia [Unknown]
  - Neuropathy peripheral [Unknown]
  - Sleep disorder [Unknown]
  - Constipation [Unknown]
  - Malaise [Not Recovered/Not Resolved]
  - Catheter site pain [Unknown]
  - Tremor [Unknown]
  - Fatigue [Unknown]
  - Urinary retention [Not Recovered/Not Resolved]
  - Nocturia [Unknown]
  - Paraesthesia [Unknown]
  - Bronchitis [Unknown]
  - Anxiety [Unknown]
  - Blood test abnormal [Not Recovered/Not Resolved]

NARRATIVE: CASE EVENT DATE: 20190912
